FAERS Safety Report 5560273-9 (Version None)
Quarter: 2007Q4

REPORT INFORMATION
  Report Type: 
  Country: None (occurrence: None)
  Receive Date: 20071214
  Receipt Date: 20071030
  Transmission Date: 20080405
  Serious: No
  Sender: FDA-Public Use
  Company Number: US-ABBOTT-07P-163-0422902-00

PATIENT
  Sex: Female
  Weight: 57.658 kg

DRUGS (16)
  1. HUMIRA [Suspect]
     Indication: CROHN'S DISEASE
     Route: 058
     Dates: start: 20071017, end: 20071031
  2. HUMIRA [Suspect]
  3. MERCAPTOPURINE [Concomitant]
     Indication: CROHN'S DISEASE
  4. OMEPRAZOLE [Concomitant]
     Indication: GASTROOESOPHAGEAL REFLUX DISEASE
  5. CLONAZEPAM [Concomitant]
     Indication: DRUG USE FOR UNKNOWN INDICATION
  6. FOLIC ACID [Concomitant]
     Indication: DRUG USE FOR UNKNOWN INDICATION
  7. GLUCOSAMINE [Concomitant]
     Indication: DRUG USE FOR UNKNOWN INDICATION
  8. MAGNESIUM OXIDE [Concomitant]
     Indication: DRUG USE FOR UNKNOWN INDICATION
  9. CALCIUM SUPPLEMENT [Concomitant]
     Indication: DRUG USE FOR UNKNOWN INDICATION
  10. POTASSIUM CITRATE [Concomitant]
     Indication: DRUG USE FOR UNKNOWN INDICATION
  11. METOPROLOL [Concomitant]
     Indication: HYPERTENSION
     Route: 048
  12. MESALAMINE [Concomitant]
     Indication: CROHN'S DISEASE
  13. IRON PILLS [Concomitant]
     Indication: DRUG USE FOR UNKNOWN INDICATION
  14. LORATADINE [Concomitant]
     Indication: DRUG USE FOR UNKNOWN INDICATION
  15. LOMOTIL [Concomitant]
     Indication: DRUG USE FOR UNKNOWN INDICATION
  16. LIDOCAINE [Concomitant]
     Indication: DRUG USE FOR UNKNOWN INDICATION

REACTIONS (5)
  - ASTHENIA [None]
  - BURNING SENSATION [None]
  - FATIGUE [None]
  - MYALGIA [None]
  - URTICARIA [None]
